FAERS Safety Report 10533823 (Version 1)
Quarter: 2014Q4

REPORT INFORMATION
  Report Type: Spontaneous
  Country: US (occurrence: None)
  Receive Date: 20141021
  Receipt Date: 20141021
  Transmission Date: 20150529
  Serious: Yes (Hospitalization)
  Sender: FDA-Public Use
  Company Number: None

PATIENT
  Age: 62 Year
  Sex: Male
  Weight: 61 kg

DRUGS (4)
  1. PREDNISONE. [Concomitant]
     Active Substance: PREDNISONE
  2. MYFORTIC [Concomitant]
     Active Substance: MYCOPHENOLATE SODIUM
  3. DECADRON [Concomitant]
     Active Substance: DEXAMETHASONE
  4. BELATACEPT [Suspect]
     Active Substance: BELATACEPT
     Indication: IMMUNOSUPPRESSANT DRUG THERAPY
     Dates: start: 20140824

REACTIONS (6)
  - Brain oedema [None]
  - Intracranial pressure increased [None]
  - Diffuse large B-cell lymphoma [None]
  - Subarachnoid haemorrhage [None]
  - Glioma [None]
  - Vasogenic cerebral oedema [None]

NARRATIVE: CASE EVENT DATE: 20140829
